FAERS Safety Report 4502124-7 (Version None)
Quarter: 2004Q4

REPORT INFORMATION
  Report Type: 
  Country: None (occurrence: None)
  Receive Date: 20041116
  Receipt Date: 20041104
  Transmission Date: 20050328
  Serious: Yes (Life-Threatening, Hospitalization)
  Sender: FDA-Public Use
  Company Number: US-BRISTOL-MYERS SQUIBB COMPANY-12757563

PATIENT
  Age: 65 Year
  Sex: Male
  Weight: 86 kg

DRUGS (4)
  1. KENALOG-40 [Suspect]
     Indication: BACK PAIN
     Route: 030
     Dates: start: 20041024, end: 20041024
  2. XYLOCAINE [Suspect]
     Indication: BACK PAIN
     Dosage: 0.5-1ML
     Route: 030
     Dates: start: 20041024, end: 20041024
  3. CELEBREX [Concomitant]
     Dates: start: 20041022
  4. BENICAR [Concomitant]
     Dosage: 1 DOSAGE FORM = 20MG/12.5 MG TABLET, FOR 3-4 MONTHS

REACTIONS (4)
  - DYSPNOEA [None]
  - HYPERTENSION [None]
  - NECROTISING FASCIITIS [None]
  - RASH [None]
